FAERS Safety Report 25944149 (Version 1)
Quarter: 2025Q4

REPORT INFORMATION
  Report Type: Report from Study
  Country: US (occurrence: US)
  Receive Date: 20251021
  Receipt Date: 20251021
  Transmission Date: 20260118
  Serious: Yes (Hospitalization, Other)
  Sender: GILEAD
  Company Number: US-GILEAD-2025-0732848

PATIENT
  Age: 60 Year
  Sex: Female

DRUGS (1)
  1. SELADELPAR [Suspect]
     Active Substance: SELADELPAR
     Indication: Primary biliary cholangitis
     Dosage: 10 MG, QD
     Route: 048

REACTIONS (5)
  - Headache [Unknown]
  - Renal haemorrhage [Unknown]
  - Pyelonephritis [Unknown]
  - Pain [Unknown]
  - Back pain [Not Recovered/Not Resolved]
